FAERS Safety Report 4700639-X (Version None)
Quarter: 2005Q2

REPORT INFORMATION
  Report Type: 
  Country: None (occurrence: None)
  Receive Date: 20050627
  Receipt Date: 20050615
  Transmission Date: 20051028
  Serious: Yes (Hospitalization)
  Sender: FDA-Public Use
  Company Number: 2005089525

PATIENT
  Age: 59 Year
  Sex: Male

DRUGS (3)
  1. NORVASC [Suspect]
     Indication: HYPERTENSION
     Dosage: 10 MG (5 MG, 2 IN 1 D); ORAL
     Route: 048
     Dates: start: 20020901
  2. LAFUTIDINE [Concomitant]
  3. ALINAMIN (PROSULTIAMINE) [Concomitant]

REACTIONS (3)
  - CEREBROVASCULAR STENOSIS [None]
  - HEMIPLEGIA [None]
  - TRANSIENT ISCHAEMIC ATTACK [None]
